FAERS Safety Report 5753989-2 (Version None)
Quarter: 2008Q2

REPORT INFORMATION
  Report Type: 
  Country: None (occurrence: None)
  Receive Date: 20080527
  Receipt Date: 20080527
  Transmission Date: 20081010
  Serious: Yes (Hospitalization)
  Sender: FDA-Public Use
  Company Number: None

PATIENT
  Age: 27 Year
  Sex: Female
  Weight: 74 kg

DRUGS (2)
  1. LAMICTAL [Suspect]
     Indication: BIPOLAR DISORDER
     Dosage: 50MG BID PO
     Route: 048
     Dates: start: 20080524, end: 20080525
  2. LAMICTAL [Suspect]
     Indication: DEPRESSION
     Dosage: 50MG BID PO
     Route: 048
     Dates: start: 20080524, end: 20080525

REACTIONS (1)
  - RASH [None]
